FAERS Safety Report 19207117 (Version 2)
Quarter: 2021Q2

REPORT INFORMATION
  Report Type: Spontaneous
  Country: AR (occurrence: AR)
  Receive Date: 20210503
  Receipt Date: 20210621
  Transmission Date: 20210717
  Serious: Yes (Hospitalization)
  Sender: FDA-Public Use
  Company Number: NVSC2021AR097359

PATIENT
  Sex: Female

DRUGS (3)
  1. ULTIBRO BREEZHALER [Suspect]
     Active Substance: GLYCOPYRRONIUM\INDACATEROL
     Indication: CHRONIC OBSTRUCTIVE PULMONARY DISEASE
     Dosage: 0.5 MG, QD
     Route: 065
  2. ULTIBRO BREEZHALER [Suspect]
     Active Substance: GLYCOPYRRONIUM\INDACATEROL
     Dosage: UNK
     Route: 065
  3. ULTIBRO BREEZHALER [Suspect]
     Active Substance: GLYCOPYRRONIUM\INDACATEROL
     Dosage: UNK
     Route: 065

REACTIONS (9)
  - Bronchitis [Recovering/Resolving]
  - Asthma [Unknown]
  - Diarrhoea [Unknown]
  - Fungal infection [Unknown]
  - Heart rate decreased [Unknown]
  - Oxygen saturation decreased [Recovering/Resolving]
  - Headache [Unknown]
  - Feeling abnormal [Recovering/Resolving]
  - Abdominal discomfort [Unknown]
